APPROVED DRUG PRODUCT: DIPRIVAN
Active Ingredient: PROPOFOL
Strength: 10MG/ML
Dosage Form/Route: INJECTABLE;INJECTION
Application: N019627 | Product #001
Applicant: FRESENIUS KABI USA LLC
Approved: Oct 2, 1989 | RLD: No | RS: No | Type: DISCN